FAERS Safety Report 8493160-7 (Version None)
Quarter: 2012Q3

REPORT INFORMATION
  Report Type: 
  Country: None (occurrence: None)
  Receive Date: 20120706
  Receipt Date: 20120703
  Transmission Date: 20120928
  Serious: Yes (Other)
  Sender: FDA-Public Use
  Company Number: JP-BAYER-2012-066364

PATIENT
  Age: 26 Year
  Sex: Female

DRUGS (2)
  1. ACETAMINOPHEN [Concomitant]
     Dosage: 400 MG, PRN
     Route: 048
  2. AVELOX [Suspect]
     Indication: PUNCTURE SITE INFECTION
     Dosage: 400 MG, QD
     Route: 048
     Dates: start: 20120517, end: 20120517

REACTIONS (8)
  - DYSPHONIA [None]
  - PHARYNGEAL OEDEMA [None]
  - COUGH [None]
  - URTICARIA [None]
  - FACE OEDEMA [None]
  - RASH GENERALISED [None]
  - DYSPNOEA [None]
  - SNEEZING [None]
